FAERS Safety Report 23523879 (Version 1)
Quarter: 2024Q1

REPORT INFORMATION
  Report Type: Report from Study
  Country: GB (occurrence: GB)
  Receive Date: 20240214
  Receipt Date: 20240214
  Transmission Date: 20240410
  Serious: Yes (Other)
  Sender: FDA-Public Use
  Company Number: GB-002147023-NVSC2021GB047685

PATIENT
  Sex: Female

DRUGS (2)
  1. HYRIMOZ [Suspect]
     Active Substance: ADALIMUMAB-ADAZ
     Dosage: 12 MG EOW
     Route: 058
  2. HYRIMOZ [Suspect]
     Active Substance: ADALIMUMAB-ADAZ
     Indication: Ankylosing spondylitis
     Dosage: 40 MG, Q2W (2 PRE-FILLED DISPOSABLE INJECTION)
     Route: 058

REACTIONS (5)
  - Viral infection [Unknown]
  - Vertigo [Unknown]
  - Ear discomfort [Unknown]
  - Dizziness [Unknown]
  - Liver disorder [Unknown]
